FAERS Safety Report 13499677 (Version 1)
Quarter: 2017Q2

REPORT INFORMATION
  Report Type: Spontaneous
  Country: GB (occurrence: GB)
  Receive Date: 20170501
  Receipt Date: 20170501
  Transmission Date: 20170830
  Serious: Yes (Other)
  Sender: FDA-Public Use
  Company Number: PHFR2017GB002857

PATIENT
  Age: 84 Year
  Sex: Female

DRUGS (1)
  1. BISOPROLOL [Suspect]
     Active Substance: BISOPROLOL
     Indication: PRODUCT USED FOR UNKNOWN INDICATION
     Route: 065
     Dates: start: 20170407

REACTIONS (5)
  - Arrhythmia [Unknown]
  - Erythema [Unknown]
  - Dyspnoea [Unknown]
  - Nausea [Unknown]
  - Skin tightness [Unknown]
